FAERS Safety Report 13129279 (Version 1)
Quarter: 2017Q1

REPORT INFORMATION
  Report Type: Report from Study
  Country: BR (occurrence: BR)
  Receive Date: 20170119
  Receipt Date: 20170119
  Transmission Date: 20170428
  Serious: Yes (Hospitalization, Other)
  Sender: FDA-Public Use
  Company Number: BR-ALEXION PHARMACEUTICALS INC-A201405088

PATIENT
  Age: 12 Year
  Sex: Male

DRUGS (3)
  1. SOLIRIS [Suspect]
     Active Substance: ECULIZUMAB
     Dosage: 900 MG, UNK
     Route: 042
     Dates: start: 20131206
  2. SOLIRIS [Suspect]
     Active Substance: ECULIZUMAB
     Indication: HAEMOLYTIC URAEMIC SYNDROME
     Dosage: 600 MG, UNK
     Route: 042
     Dates: start: 20131122
  3. PHENOBARBITAL. [Suspect]
     Active Substance: PHENOBARBITAL
     Indication: SEIZURE
     Route: 065

REACTIONS (32)
  - Hypotension [Unknown]
  - Vomiting [Unknown]
  - Pseudomonas infection [Unknown]
  - Unresponsive to stimuli [Unknown]
  - Rectal haemorrhage [Recovered/Resolved]
  - Haemorrhage [Unknown]
  - Peritonitis bacterial [Unknown]
  - Seizure [Recovered/Resolved]
  - Hemiplegia [Unknown]
  - Subdural haematoma [Recovering/Resolving]
  - Renal impairment [Unknown]
  - Ascites [Unknown]
  - Anuria [Unknown]
  - Pyrexia [Unknown]
  - Azotaemia [Unknown]
  - Headache [Unknown]
  - Nausea [Unknown]
  - Renal disorder [Unknown]
  - Hyperparathyroidism [Unknown]
  - Oedema [Recovering/Resolving]
  - Device related infection [Recovering/Resolving]
  - Blood pressure increased [Unknown]
  - Fungal infection [Unknown]
  - Cerebrovascular accident [Recovered/Resolved]
  - Hypercalcaemia [Recovered/Resolved]
  - Somnolence [Unknown]
  - Thrombotic microangiopathy [Unknown]
  - Gastrointestinal haemorrhage [Recovered/Resolved]
  - Haemorrhagic stroke [Recovered/Resolved]
  - Anaemia [Unknown]
  - Gastrointestinal disorder [Unknown]
  - Oliguria [Unknown]

NARRATIVE: CASE EVENT DATE: 20140528
